FAERS Safety Report 5478636-9 (Version None)
Quarter: 2007Q4

REPORT INFORMATION
  Report Type: 
  Country: None (occurrence: None)
  Receive Date: 20071005
  Receipt Date: 20070925
  Transmission Date: 20080405
  Serious: Yes (Other)
  Sender: FDA-Public Use
  Company Number: JP-BRISTOL-MYERS SQUIBB COMPANY-13867544

PATIENT
  Age: 75 Year
  Sex: Male

DRUGS (9)
  1. GATIFLOXACIN [Suspect]
     Indication: CYSTITIS
     Dosage: GATIFLOXACIN 400MG/DAY WAS TAKEN FROM 16-JUN-2007 TO 24-JUN-2007 AND 02-JUL-2007 TO 04-JUL-2007.
     Route: 048
     Dates: start: 20070707, end: 20070726
  2. LEVOFLOXACIN [Suspect]
     Indication: CYSTITIS
     Route: 048
     Dates: start: 20070625, end: 20070701
  3. SELBEX [Concomitant]
     Dosage: UNK DOSE FORM 03-JUL-2007 TO 06-JUL-2007 AND 100MG 07-JUL-2007 TO 24-JUL-2007
     Route: 048
     Dates: start: 20070707, end: 20070724
  4. BANAN [Concomitant]
     Route: 048
     Dates: start: 20070703, end: 20070706
  5. ASTOMIN [Concomitant]
     Route: 048
     Dates: start: 20070721, end: 20070723
  6. MUCOSOLVAN [Concomitant]
     Route: 048
     Dates: start: 20070721, end: 20070723
  7. MUCODYNE [Concomitant]
     Route: 048
     Dates: start: 20070721, end: 20070723
  8. FOSMICIN [Concomitant]
     Route: 048
     Dates: start: 20070724, end: 20070725
  9. UNASYN [Concomitant]
     Route: 041
     Dates: start: 20070908

REACTIONS (2)
  - COUGH [None]
  - INTERSTITIAL LUNG DISEASE [None]
